FAERS Safety Report 6825282-8 (Version None)
Quarter: 2010Q3

REPORT INFORMATION
  Report Type: 
  Country: None (occurrence: None)
  Receive Date: 20100708
  Receipt Date: 20061201
  Transmission Date: 20110219
  Serious: No
  Sender: FDA-Public Use
  Company Number: US-PFIZER INC-2006152039

PATIENT
  Sex: Female
  Weight: 74.84 kg

DRUGS (3)
  1. CHANTIX [Suspect]
     Indication: SMOKING CESSATION THERAPY
     Route: 048
     Dates: start: 20060101
  2. PROZAC [Concomitant]
     Route: 048
  3. MULTI-VITAMINS [Concomitant]

REACTIONS (4)
  - ABNORMAL DREAMS [None]
  - DECREASED APPETITE [None]
  - FLATULENCE [None]
  - POOR QUALITY SLEEP [None]
